FAERS Safety Report 7785198-X (Version None)
Quarter: 2011Q3

REPORT INFORMATION
  Report Type: 
  Country: None (occurrence: None)
  Receive Date: 20110929
  Receipt Date: 20071023
  Transmission Date: 20111222
  Serious: No
  Sender: FDA-Public Use
  Company Number: 2007BI022819

PATIENT
  Age: 54 Year
  Sex: Male

DRUGS (2)
  1. TYSABRI [Suspect]
     Route: 042
     Dates: start: 20070730, end: 20070828
  2. TYSABRI [Suspect]
     Indication: MULTIPLE SCLEROSIS
     Route: 042
     Dates: start: 20050211, end: 20050201

REACTIONS (1)
  - HYPERSENSITIVITY [None]
